FAERS Safety Report 11703563 (Version 1)
Quarter: 2015Q4

REPORT INFORMATION
  Report Type: Spontaneous
  Country: PH (occurrence: PH)
  Receive Date: 20151105
  Receipt Date: 20151105
  Transmission Date: 20160304
  Serious: Yes (Hospitalization)
  Sender: FDA-Public Use
  Company Number: PH-009507513-1511PHL002527

PATIENT
  Age: 26 Year
  Sex: Male

DRUGS (2)
  1. JANUMET [Suspect]
     Active Substance: METFORMIN HYDROCHLORIDE\SITAGLIPTIN PHOSPHATE
     Indication: DIABETES MELLITUS
     Route: 048
  2. VELMETIA [Suspect]
     Active Substance: METFORMIN\SITAGLIPTIN
     Indication: DIABETES MELLITUS
     Dosage: ONE TABLET ONCE A DAY
     Route: 048
     Dates: end: 201510

REACTIONS (4)
  - Blood glucose abnormal [Unknown]
  - Proctalgia [Unknown]
  - Intestinal mass [Unknown]
  - Hepatitis [Unknown]

NARRATIVE: CASE EVENT DATE: 201510
